FAERS Safety Report 19920516 (Version 2)
Quarter: 2021Q4

REPORT INFORMATION
  Report Type: Spontaneous
  Country: JP (occurrence: JP)
  Receive Date: 20211006
  Receipt Date: 20211011
  Transmission Date: 20220303
  Serious: Yes (Other)
  Sender: FDA-Public Use
  Company Number: JP-SAKK-00793882

PATIENT
  Age: 50 Year
  Sex: Male

DRUGS (13)
  1. DUPIXENT [Suspect]
     Active Substance: DUPILUMAB
     Indication: Dermatitis atopic
     Dosage: EVERY 1 - 2 WEEKS
     Route: 058
  2. DUPIXENT [Suspect]
     Active Substance: DUPILUMAB
     Indication: Dermatitis atopic
     Dosage: EVERY 1 - 2 WEEKS
     Route: 058
  3. DUPIXENT [Suspect]
     Active Substance: DUPILUMAB
     Dosage: UNK
     Route: 058
     Dates: start: 2019
  4. DUPIXENT [Suspect]
     Active Substance: DUPILUMAB
     Dosage: UNK
     Route: 058
     Dates: start: 2019
  5. DUPIXENT [Suspect]
     Active Substance: DUPILUMAB
     Dosage: QM
     Route: 058
  6. DUPIXENT [Suspect]
     Active Substance: DUPILUMAB
     Dosage: QM
     Route: 058
  7. DUPIXENT [Suspect]
     Active Substance: DUPILUMAB
     Indication: Dermatitis atopic
     Dosage: EVERY 1 - 2 WEEKS
     Route: 058
  8. DUPIXENT [Suspect]
     Active Substance: DUPILUMAB
     Indication: Dermatitis atopic
     Dosage: EVERY 1 - 2 WEEKS
     Route: 058
  9. DUPIXENT [Suspect]
     Active Substance: DUPILUMAB
     Dosage: QM
     Route: 058
  10. DUPIXENT [Suspect]
     Active Substance: DUPILUMAB
     Dosage: QM
     Route: 058
  11. DUPIXENT [Suspect]
     Active Substance: DUPILUMAB
     Dosage: ONCE EVERY 2 MONTHS
     Route: 058
  12. DUPIXENT [Suspect]
     Active Substance: DUPILUMAB
     Dosage: ONCE EVERY 2 MONTHS
     Route: 058
  13. CYCLOSPORINE [Concomitant]
     Active Substance: CYCLOSPORINE
     Indication: Immunosuppressant drug therapy
     Route: 065

REACTIONS (10)
  - Cellulitis [Unknown]
  - Gait disturbance [Unknown]
  - Anaphylactic reaction [Unknown]
  - Asthma [Unknown]
  - Renal function test abnormal [Unknown]
  - Blood creatinine abnormal [Unknown]
  - Herpes virus infection [Unknown]
  - Drug intolerance [Unknown]
  - Product prescribing error [Unknown]
  - Inappropriate schedule of product administration [Unknown]
